FAERS Safety Report 5241132-8 (Version None)
Quarter: 2007Q1

REPORT INFORMATION
  Report Type: 
  Country: None (occurrence: None)
  Receive Date: 20070215
  Receipt Date: 20070215
  Transmission Date: 20070707
  Serious: No
  Sender: FDA-Public Use
  Company Number: None

PATIENT
  Age: 34 Year
  Sex: Female
  Weight: 73.4827 kg

DRUGS (2)
  1. ZICAM COLD REMEDY GEL SWABS ZINCONIUM GLUCONICUM 2X ZICAM LLC [Suspect]
     Indication: SINUS CONGESTION
     Dosage: 2 SWABS PER DA EVERY 12 HOURS NASAL
     Route: 045
     Dates: start: 20070208, end: 20070210
  2. COLD-EEZE LOZENGES STRAWBERRY CREAM LOZENGES COLD EEZE [Suspect]
     Indication: PHARYNGOLARYNGEAL PAIN
     Dosage: THE ENTIRE BAG 2 DAY PERIOD PO
     Route: 048
     Dates: start: 20070208, end: 20070210

REACTIONS (5)
  - ANOSMIA [None]
  - NASAL DISORDER [None]
  - NASAL DRYNESS [None]
  - RHINALGIA [None]
  - SWELLING [None]
